FAERS Safety Report 4533148-1 (Version None)
Quarter: 2004Q4

REPORT INFORMATION
  Report Type: 
  Country: None (occurrence: None)
  Receive Date: 20041206
  Receipt Date: 20041021
  Transmission Date: 20050328
  Serious: No
  Sender: FDA-Public Use
  Company Number: USA041081968

PATIENT
  Age: 48 Year
  Sex: Female

DRUGS (5)
  1. PROZAC [Suspect]
     Indication: PANIC ATTACK
     Dosage: 40 MG DAY
     Dates: start: 19940101, end: 19940101
  2. CYMBALTA [Suspect]
     Indication: NEPHROLITHIASIS
     Dosage: 30 MG DAY
     Dates: start: 20041001, end: 20041001
  3. HYDROCHLOROTHIAZIDE [Concomitant]
  4. URISED [Concomitant]
  5. METOPROLOL SUCCINATE [Concomitant]

REACTIONS (4)
  - EYE SWELLING [None]
  - HYPERSENSITIVITY [None]
  - SOMNOLENCE [None]
  - URTICARIA [None]
